FAERS Safety Report 6315464-6 (Version None)
Quarter: 2009Q3

REPORT INFORMATION
  Report Type: 
  Country: None (occurrence: None)
  Receive Date: 20090819
  Receipt Date: 20090805
  Transmission Date: 20100115
  Serious: Yes (Death)
  Sender: FDA-Public Use
  Company Number: FR-MYLANLABS-2009S1012788

PATIENT
  Age: 38 Year
  Sex: Female

DRUGS (8)
  1. METHOTREXATE MERCK [Suspect]
     Indication: B-CELL TYPE ACUTE LEUKAEMIA
     Route: 037
     Dates: start: 20090416, end: 20090416
  2. PREDNISONE [Suspect]
     Dates: start: 20090408
  3. PREDNISONE [Suspect]
  4. DEPO-MEDROL [Suspect]
     Indication: ACUTE LEUKAEMIA
     Route: 037
     Dates: start: 20090416, end: 20090416
  5. ARACYTINE [Suspect]
     Indication: ACUTE LEUKAEMIA
     Route: 037
     Dates: start: 20090416, end: 20090416
  6. CERUBIDINE [Suspect]
     Indication: ACUTE LEUKAEMIA
     Route: 042
     Dates: start: 20090416, end: 20090419
  7. VINCRISTINE TEVA [Suspect]
     Indication: ACUTE LEUKAEMIA
     Route: 042
     Dates: start: 20090416, end: 20090416
  8. ENDOXAN [Suspect]
     Indication: ACUTE LEUKAEMIA
     Route: 042
     Dates: start: 20090416, end: 20090416

REACTIONS (1)
  - VASCULITIS CEREBRAL [None]
